FAERS Safety Report 12419708 (Version 1)
Quarter: 2016Q2

REPORT INFORMATION
  Report Type: Spontaneous
  Country: FR (occurrence: FR)
  Receive Date: 20160531
  Receipt Date: 20160531
  Transmission Date: 20160815
  Serious: Yes (Death, Hospitalization, Other)
  Sender: FDA-Public Use
  Company Number: FR-GLAXOSMITHKLINE-FR2016GSK076143

PATIENT
  Age: 65 Year
  Sex: Male

DRUGS (4)
  1. CELLCEPT [Suspect]
     Active Substance: MYCOPHENOLATE MOFETIL\MYCOPHENOLATE MOFETIL HYDROCHLORIDE
     Indication: MUSCULAR WEAKNESS
     Dosage: 1000 MG, QD
     Route: 048
     Dates: start: 2015, end: 20160424
  2. SOLUPRED 20 MG [Suspect]
     Active Substance: PREDNISOLONE
     Indication: MUSCULAR WEAKNESS
     Dosage: 40 MG, QD
     Route: 048
     Dates: end: 20160424
  3. METHYLPREDNISOLONE. [Concomitant]
     Active Substance: METHYLPREDNISOLONE
     Indication: PRODUCT USED FOR UNKNOWN INDICATION
     Dosage: UNK
     Dates: start: 20160330, end: 20160406
  4. SERETIDE [Suspect]
     Active Substance: FLUTICASONE PROPIONATE\SALMETEROL XINAFOATE
     Indication: PRODUCT USED FOR UNKNOWN INDICATION
     Dosage: 2 DF, SINGLE
     Route: 055
     Dates: end: 201604

REACTIONS (7)
  - Acute respiratory distress syndrome [Fatal]
  - Pneumonia [Fatal]
  - Influenza [Fatal]
  - Septic shock [Fatal]
  - Escherichia infection [None]
  - Fungal infection [Fatal]
  - Aspergillus infection [None]

NARRATIVE: CASE EVENT DATE: 201603
